FAERS Safety Report 13956028 (Version 3)
Quarter: 2018Q3

REPORT INFORMATION
  Report Type: Spontaneous
  Country: US (occurrence: US)
  Receive Date: 20170911
  Receipt Date: 20180914
  Transmission Date: 20181010
  Serious: Yes (Hospitalization)
  Sender: FDA-Public Use
  Company Number: US-DSJP-DSU-2017-136485

PATIENT

DRUGS (1)
  1. BENICAR [Suspect]
     Active Substance: OLMESARTAN MEDOXOMIL
     Indication: PRODUCT USED FOR UNKNOWN INDICATION
     Dosage: 40 MG, QD
     Route: 048
     Dates: end: 20170824

REACTIONS (8)
  - Diarrhoea [Recovered/Resolved]
  - Acute kidney injury [Unknown]
  - Nausea [Recovered/Resolved]
  - Abdominal pain [Recovered/Resolved]
  - Hypotension [Unknown]
  - Vomiting [Unknown]
  - Dehydration [Recovered/Resolved]
  - Incisional hernia [Unknown]

NARRATIVE: CASE EVENT DATE: 201510
